FAERS Safety Report 4689889-9 (Version None)
Quarter: 2005Q2

REPORT INFORMATION
  Report Type: 
  Country: None (occurrence: None)
  Receive Date: 20050608
  Receipt Date: 20050328
  Transmission Date: 20051028
  Serious: No
  Sender: FDA-Public Use
  Company Number: 2005-BP-05165BP

PATIENT
  Age: 82 Year
  Sex: Female

DRUGS (4)
  1. SPIRIVA [Suspect]
     Indication: DYSPNOEA
     Dosage: 18 MCG (18 MCG, OD), IH
     Route: 055
     Dates: start: 20040901
  2. ADVAIR DISKUS 100/50 [Concomitant]
  3. SYNTHROID [Concomitant]
  4. SPIRIVA [Suspect]

REACTIONS (3)
  - DYSPHONIA [None]
  - DYSPNOEA [None]
  - MYALGIA [None]
